FAERS Safety Report 9383168 (Version 3)
Quarter: 2013Q3

REPORT INFORMATION
  Report Type: Spontaneous
  Country: FR (occurrence: FR)
  Receive Date: 20130704
  Receipt Date: 20130807
  Transmission Date: 20140515
  Serious: Yes (Life-Threatening, Hospitalization)
  Sender: FDA-Public Use
  Company Number: FR-BRISTOL-MYERS SQUIBB COMPANY-19046762

PATIENT
  Age: 78 Year
  Sex: Male

DRUGS (9)
  1. COUMADINE [Suspect]
     Indication: ATRIAL FIBRILLATION
     Dosage: DRUG REINTRODUCED ON 03-JUN-2013.
     Route: 048
  2. PARACETAMOL [Suspect]
  3. TARCEVA [Suspect]
     Dates: start: 201303
  4. DOXYCYCLINE HCL [Suspect]
  5. TAHOR [Suspect]
  6. IMOVANE [Suspect]
  7. XANAX [Concomitant]
  8. LASILIX [Concomitant]
  9. DIGOXIN [Concomitant]

REACTIONS (3)
  - Haemothorax [Recovered/Resolved with Sequelae]
  - Drug-induced liver injury [Recovered/Resolved]
  - International normalised ratio increased [Recovered/Resolved]
